FAERS Safety Report 26168029 (Version 1)
Quarter: 2025Q4

REPORT INFORMATION
  Report Type: Spontaneous
  Country: US (occurrence: US)
  Receive Date: 20251217
  Receipt Date: 20251217
  Transmission Date: 20260117
  Serious: No
  Sender: BRAEBURN PHARMACEUTICALS
  Company Number: US-BRAEBURN PHARMACEUTICALS-US-BRA-25-000965

PATIENT
  Sex: Male

DRUGS (17)
  1. BRIXADI [Suspect]
     Active Substance: BUPRENORPHINE
     Indication: Drug dependence
     Dosage: 64 MILLIGRAM, EVERY 28 DAYS
     Route: 058
     Dates: start: 20251017
  2. BRIXADI [Suspect]
     Active Substance: BUPRENORPHINE
     Indication: Drug use disorder
  3. BUPRENORPHINE\NALOXONE [Concomitant]
     Active Substance: BUPRENORPHINE\NALOXONE
     Indication: Product used for unknown indication
     Dosage: UNK
     Route: 065
  4. CELECOXIB [Concomitant]
     Active Substance: CELECOXIB
     Indication: Product used for unknown indication
     Dosage: 100 MILLIGRAM
     Route: 065
  5. CELECOXIB [Concomitant]
     Active Substance: CELECOXIB
     Dosage: 200 MILLIGRAM
     Route: 065
  6. CLONIDINE [Concomitant]
     Active Substance: CLONIDINE
     Indication: Product used for unknown indication
     Dosage: 0.1 MILLIGRAM
     Route: 065
  7. GABAPENTIN [Concomitant]
     Active Substance: GABAPENTIN
     Indication: Product used for unknown indication
     Dosage: 300 MILLIGRAM
     Route: 065
  8. LAMOTRIGINE [Concomitant]
     Active Substance: LAMOTRIGINE
     Indication: Product used for unknown indication
     Dosage: 100 MILLIGRAM
     Route: 065
  9. LAMOTRIGINE [Concomitant]
     Active Substance: LAMOTRIGINE
     Dosage: 150 MILLIGRAM
     Route: 065
  10. LAMOTRIGINE [Concomitant]
     Active Substance: LAMOTRIGINE
     Dosage: 200 MILLIGRAM
     Route: 065
  11. METHYLPREDNISOLONE [Concomitant]
     Active Substance: METHYLPREDNISOLONE
     Indication: Product used for unknown indication
     Dosage: 4 MILLIGRAM
     Route: 065
  12. OMNIPAQUE [Concomitant]
     Active Substance: IOHEXOL
     Indication: Product used for unknown indication
     Dosage: UNK, 240 MG/ML
     Route: 065
  13. OXYCODONE [Concomitant]
     Active Substance: OXYCODONE
     Indication: Product used for unknown indication
     Dosage: 5 MILLIGRAM
     Route: 065
  14. SILDENAFIL [Concomitant]
     Active Substance: SILDENAFIL
     Indication: Product used for unknown indication
     Dosage: 20 MILLIGRAM
     Route: 065
  15. TIZANIDINE [Concomitant]
     Active Substance: TIZANIDINE
     Indication: Product used for unknown indication
     Dosage: 4 MILLIGRAM
     Route: 065
  16. TRIAMCINOLONE ACETONIDE [Concomitant]
     Active Substance: TRIAMCINOLONE ACETONIDE
     Indication: Product used for unknown indication
     Dosage: UNK, 40 MG/ML
     Route: 065
  17. PEG 3350 [Concomitant]
     Active Substance: POLYETHYLENE GLYCOL 3350
     Indication: Product used for unknown indication
     Route: 065

REACTIONS (1)
  - Anxiety [Unknown]

NARRATIVE: CASE EVENT DATE: 20250101
